FAERS Safety Report 6840089-3 (Version None)
Quarter: 2010Q3

REPORT INFORMATION
  Report Type: 
  Country: None (occurrence: None)
  Receive Date: 20100713
  Receipt Date: 20100713
  Transmission Date: 20110219
  Serious: Yes (Disabling)
  Sender: FDA-Public Use
  Company Number: None

PATIENT
  Age: 28 Year
  Sex: Female
  Weight: 74.8435 kg

DRUGS (1)
  1. OXYBUTYNIN [Suspect]
     Indication: MICTURITION DISORDER

REACTIONS (1)
  - INFLUENZA LIKE ILLNESS [None]
